FAERS Safety Report 17263489 (Version 1)
Quarter: 2020Q1

REPORT INFORMATION
  Report Type: Spontaneous
  Country: US (occurrence: US)
  Receive Date: 20200113
  Receipt Date: 20200113
  Transmission Date: 20200409
  Serious: Yes (Other)
  Sender: FDA-Public Use
  Company Number: US-PFIZER INC-2020013314

PATIENT
  Age: 77 Year
  Sex: Female
  Weight: 68.4 kg

DRUGS (2)
  1. DETROL LA [Suspect]
     Active Substance: TOLTERODINE TARTRATE
     Indication: INCONTINENCE
     Dosage: 4 MG, 1X/DAY
     Route: 048
  2. DETROL LA [Suspect]
     Active Substance: TOLTERODINE TARTRATE
     Dosage: 2 MG, 1X/DAY
     Route: 048
     Dates: start: 201912

REACTIONS (3)
  - Thrombocytopenia [Unknown]
  - Drug ineffective [Unknown]
  - Pruritus [Not Recovered/Not Resolved]

NARRATIVE: CASE EVENT DATE: 201912
